FAERS Safety Report 8229861-5 (Version None)
Quarter: 2012Q1

REPORT INFORMATION
  Report Type: 
  Country: None (occurrence: None)
  Receive Date: 20120323
  Receipt Date: 20120313
  Transmission Date: 20120608
  Serious: Yes (Other)
  Sender: FDA-Public Use
  Company Number: BR-AMGEN-BRASP2012017208

PATIENT
  Sex: Female
  Weight: 80 kg

DRUGS (1)
  1. ENBREL [Suspect]
     Indication: RHEUMATOID ARTHRITIS
     Dosage: 50 MG, 1X/WEEK
     Route: 058
     Dates: start: 20101201

REACTIONS (6)
  - HEAD DISCOMFORT [None]
  - FRACTURE [None]
  - BLOOD PRESSURE DECREASED [None]
  - MEMORY IMPAIRMENT [None]
  - FALL [None]
  - GAIT DISTURBANCE [None]
